FAERS Safety Report 20370159 (Version 1)
Quarter: 2022Q1

REPORT INFORMATION
  Report Type: Spontaneous
  Country: US (occurrence: None)
  Receive Date: 20220124
  Receipt Date: 20220124
  Transmission Date: 20220423
  Serious: Yes (Hospitalization)
  Sender: FDA-Public Use
  Company Number: None

PATIENT
  Sex: Male

DRUGS (3)
  1. HUMIRA [Suspect]
     Active Substance: ADALIMUMAB
     Indication: Rheumatoid arthritis
     Dosage: OTHER QUANTITY : 40/0.8 MG/ML;?FREQUENCY : EVERY OTHER WEEK;?
     Route: 058
     Dates: start: 20211110
  2. OXYCODONE [Concomitant]
     Active Substance: OXYCODONE
  3. REMICADE [Concomitant]
     Active Substance: INFLIXIMAB

REACTIONS (3)
  - Gastric haemorrhage [None]
  - Rheumatoid arthritis [None]
  - Arthralgia [None]
